FAERS Safety Report 13460902 (Version 1)
Quarter: 2017Q2

REPORT INFORMATION
  Report Type: Spontaneous
  Country: US (occurrence: US)
  Receive Date: 20170419
  Receipt Date: 20170419
  Transmission Date: 20170830
  Serious: Yes (Hospitalization)
  Sender: FDA-Public Use
  Company Number: None

PATIENT
  Age: 80 Year
  Sex: Male

DRUGS (27)
  1. VITAMIN D [Concomitant]
     Active Substance: CHOLECALCIFEROL
  2. MUCUSRELIEF [Concomitant]
  3. ALBUTEROL. [Concomitant]
     Active Substance: ALBUTEROL
  4. AMLODIPINE [Concomitant]
     Active Substance: AMLODIPINE BESYLATE
  5. ALPRAZOLAM. [Concomitant]
     Active Substance: ALPRAZOLAM
  6. LEVOTHYROXIN [Concomitant]
     Active Substance: LEVOTHYROXINE
  7. COQ10 [Concomitant]
     Active Substance: UBIDECARENONE
  8. LOVASTATIN. [Concomitant]
     Active Substance: LOVASTATIN
  9. FINASTERIDE. [Concomitant]
     Active Substance: FINASTERIDE
  10. LOSARTAN POT [Concomitant]
     Active Substance: LOSARTAN POTASSIUM
  11. VITAMIN B12 [Concomitant]
     Active Substance: CYANOCOBALAMIN
  12. NASONEX [Concomitant]
     Active Substance: MOMETASONE FUROATE
  13. FLUTICASONE. [Concomitant]
     Active Substance: FLUTICASONE
  14. PROBIOTIC [Concomitant]
     Active Substance: PROBIOTICS NOS
  15. POT CL [Concomitant]
  16. METOPROLOL. [Concomitant]
     Active Substance: METOPROLOL
  17. CYANOCOBALAM [Concomitant]
  18. CLOPIDOGREL [Concomitant]
     Active Substance: CLOPIDOGREL BISULFATE
  19. PROAIR HFA [Concomitant]
     Active Substance: ALBUTEROL SULFATE
  20. ASPIRIN. [Concomitant]
     Active Substance: ASPIRIN
  21. FLOMAX [Concomitant]
     Active Substance: TAMSULOSIN HYDROCHLORIDE
  22. PLAVIX [Concomitant]
     Active Substance: CLOPIDOGREL BISULFATE
  23. VOTRIENT [Suspect]
     Active Substance: PAZOPANIB HYDROCHLORIDE
     Indication: RENAL CANCER
     Route: 048
     Dates: start: 201403
  24. FOLIC ACID. [Suspect]
     Active Substance: FOLIC ACID
  25. POTASSIUM [Concomitant]
     Active Substance: POTASSIUM
  26. CHLORTHALID [Concomitant]
  27. FLOVENT DISK [Concomitant]

REACTIONS (1)
  - Transient ischaemic attack [None]

NARRATIVE: CASE EVENT DATE: 20170318
